FAERS Safety Report 19159864 (Version 3)
Quarter: 2021Q2

REPORT INFORMATION
  Report Type: Report from Study
  Country: HU (occurrence: HU)
  Receive Date: 20210420
  Receipt Date: 20210621
  Transmission Date: 20210717
  Serious: Yes (Other)
  Sender: FDA-Public Use
  Company Number: NVSC2021HU078337

PATIENT
  Age: 66 Year

DRUGS (2)
  1. KISQALI [Suspect]
     Active Substance: RIBOCICLIB
     Indication: BREAST CANCER
     Dosage: UNK, (1X3)
     Route: 048
     Dates: start: 20210318, end: 20210322
  2. FULVESTRANT. [Suspect]
     Active Substance: FULVESTRANT
     Indication: BREAST CANCER
     Dosage: UNK, Q2W, (2 AMPULES)
     Route: 042
     Dates: start: 20210318

REACTIONS (8)
  - Hyperthyroidism [Unknown]
  - General physical condition abnormal [Unknown]
  - Atrial fibrillation [Unknown]
  - Glomerular filtration rate decreased [Not Recovered/Not Resolved]
  - Asthenia [Not Recovered/Not Resolved]
  - Renal impairment [Unknown]
  - Diarrhoea [Recovered/Resolved]
  - Cardiac disorder [Unknown]

NARRATIVE: CASE EVENT DATE: 20210318
